FAERS Safety Report 7625675-5 (Version None)
Quarter: 2011Q3

REPORT INFORMATION
  Report Type: 
  Country: None (occurrence: None)
  Receive Date: 20110713
  Receipt Date: 20110705
  Transmission Date: 20111222
  Serious: Yes (Other)
  Sender: FDA-Public Use
  Company Number: B0732282A

PATIENT
  Age: 73 Year
  Sex: Male

DRUGS (1)
  1. CEFUROXIME SODIUM [Suspect]
     Indication: PROPHYLAXIS

REACTIONS (2)
  - STAPHYLOCOCCAL INFECTION [None]
  - DEVICE RELATED INFECTION [None]
